FAERS Safety Report 5115369-2 (Version None)
Quarter: 2006Q3

REPORT INFORMATION
  Report Type: 
  Country: None (occurrence: None)
  Receive Date: 20060922
  Receipt Date: 20060911
  Transmission Date: 20061208
  Serious: Yes (Other)
  Sender: FDA-Public Use
  Company Number: 2005014203

PATIENT
  Sex: Male

DRUGS (2)
  1. LYRICA [Suspect]
     Indication: BACK PAIN
     Dosage: ORAL
     Route: 048
     Dates: start: 20040101
  2. GABAPENTIN [Suspect]
     Indication: BACK PAIN

REACTIONS (19)
  - ABDOMINAL PAIN [None]
  - ASTHENIA [None]
  - BUTTOCK PAIN [None]
  - CONSTIPATION [None]
  - DIZZINESS [None]
  - DRUG INEFFECTIVE [None]
  - EYE PAIN [None]
  - FATIGUE [None]
  - FEELING DRUNK [None]
  - GAIT DISTURBANCE [None]
  - HEADACHE [None]
  - LOSS OF CONTROL OF LEGS [None]
  - MEMORY IMPAIRMENT [None]
  - MUSCLE SPASMS [None]
  - PAIN [None]
  - PRURITUS [None]
  - TREMOR [None]
  - VISUAL DISTURBANCE [None]
  - WEIGHT INCREASED [None]
